FAERS Safety Report 4868067-4 (Version None)
Quarter: 2005Q4

REPORT INFORMATION
  Report Type: 
  Country: None (occurrence: None)
  Receive Date: 20051229
  Receipt Date: 20051219
  Transmission Date: 20060501
  Serious: Yes (Congenital Anomaly)
  Sender: FDA-Public Use
  Company Number: GB-ABBOTT-05P-167-0320240-00

PATIENT
  Sex: Male
  Weight: 4.984 kg

DRUGS (3)
  1. EPILIM TABLETS [Suspect]
     Indication: DRUG EXPOSURE DURING PREGNANCY
     Route: 065
  2. EPILIM TABLETS [Suspect]
  3. CARBAMAZEPINE [Suspect]
     Indication: DRUG EXPOSURE DURING PREGNANCY
     Route: 065

REACTIONS (7)
  - ABNORMAL BEHAVIOUR [None]
  - DEVELOPMENTAL DELAY [None]
  - DRUG EXPOSURE DURING PREGNANCY [None]
  - FEEDING DISORDER NEONATAL [None]
  - FOETAL VALPROATE SYNDROME [None]
  - LARGE FOR DATES BABY [None]
  - TALIPES [None]
